FAERS Safety Report 5205367-2 (Version None)
Quarter: 2007Q1

REPORT INFORMATION
  Report Type: 
  Country: None (occurrence: None)
  Receive Date: 20070110
  Receipt Date: 20070104
  Transmission Date: 20070707
  Serious: Yes (Other)
  Sender: FDA-Public Use
  Company Number: GB-MERCK-0701GBR00034

PATIENT
  Age: 52 Year
  Sex: Female

DRUGS (1)
  1. HYDROCORTONE [Suspect]
     Indication: DERMATITIS CONTACT
     Route: 061

REACTIONS (1)
  - SKIN ATROPHY [None]
